FAERS Safety Report 8862934 (Version 2)
Quarter: 2012Q4

REPORT INFORMATION
  Report Type: 
  Country: CH (occurrence: CH)
  Receive Date: 20121026
  Receipt Date: 20121107
  Transmission Date: 20130627
  Serious: Yes (Other)
  Sender: FDA-Public Use
  Company Number: PHHY2012CH095632

PATIENT
  Sex: Male

DRUGS (1)
  1. GILENYA [Suspect]
     Indication: RELAPSING-REMITTING MULTIPLE SCLEROSIS
     Dosage: UNK UKN, UNK
     Route: 048
     Dates: start: 20111119

REACTIONS (1)
  - Polyarthritis [Recovered/Resolved]
